FAERS Safety Report 7578494-2 (Version None)
Quarter: 2011Q2

REPORT INFORMATION
  Report Type: 
  Country: None (occurrence: None)
  Receive Date: 20110622
  Receipt Date: 20110615
  Transmission Date: 20111010
  Serious: Yes (Death, Other)
  Sender: FDA-Public Use
  Company Number: 2010SP044546

PATIENT
  Age: 25 Year
  Sex: Female
  Weight: 63.5036 kg

DRUGS (3)
  1. ZOLOFT [Concomitant]
  2. NUVARING [Suspect]
     Indication: CONTRACEPTION
     Dates: start: 20091201, end: 20100101
  3. VISTARIL [Concomitant]

REACTIONS (10)
  - PULMONARY EMBOLISM [None]
  - MIGRAINE [None]
  - HYPERCOAGULATION [None]
  - THROMBOSIS [None]
  - SYNCOPE [None]
  - CEREBRAL VENOUS THROMBOSIS [None]
  - CEREBROVASCULAR ACCIDENT [None]
  - SUBDURAL HAEMORRHAGE [None]
  - ACUTE RESPIRATORY FAILURE [None]
  - SUBARACHNOID HAEMORRHAGE [None]
